FAERS Safety Report 4717015-6 (Version None)
Quarter: 2005Q3

REPORT INFORMATION
  Report Type: 
  Country: None (occurrence: None)
  Receive Date: 20050715
  Receipt Date: 20050707
  Transmission Date: 20060218
  Serious: Yes (Other)
  Sender: FDA-Public Use
  Company Number: 2005-DE-02605GD

PATIENT

DRUGS (1)
  1. SALBUTAMOL (SALBUTAMOL (AEM) (SALBUTAMOL SULPHATE) [Suspect]
     Indication: ASTHMA
     Dosage: 720 MCG (NR QID)
     Route: 025

REACTIONS (1)
  - CORONARY ARTERY STENOSIS [None]
